FAERS Safety Report 8770203 (Version 1)
Quarter: 2012Q4

REPORT INFORMATION
  Report Type: 
  Country: US (occurrence: US)
  Receive Date: 20120905
  Receipt Date: 20120905
  Transmission Date: 20130627
  Serious: Yes (Death, Other)
  Sender: FDA-Public Use
  Company Number: CHPA2012US019222

PATIENT
  Age: 85 Year
  Sex: Male

DRUGS (1)
  1. VOLTAREN GEL [Suspect]
     Indication: PAIN
     Dosage: Unk, Unk
     Route: 061
     Dates: start: 2008, end: 2008

REACTIONS (4)
  - Pneumonia staphylococcal [Fatal]
  - Pneumonia klebsiella [Fatal]
  - Bronchitis [Unknown]
  - Off label use [Unknown]
